FAERS Safety Report 19768684 (Version 1)
Quarter: 2021Q3

REPORT INFORMATION
  Report Type: Spontaneous
  Country: US (occurrence: US)
  Receive Date: 20210831
  Receipt Date: 20210831
  Transmission Date: 20211014
  Serious: Yes (Life-Threatening, Other)
  Sender: FDA-Public Use
  Company Number: US-GUERBET-US-20210128

PATIENT
  Age: 54 Year
  Sex: Male

DRUGS (3)
  1. OPTIRAY 320 [Suspect]
     Active Substance: IOVERSOL
     Indication: ANGIOGRAM
     Route: 065
  2. APIXABAN [Concomitant]
     Active Substance: APIXABAN
     Indication: PRODUCT USED FOR UNKNOWN INDICATION
     Dosage: 2 TIMES PER DAY
     Route: 065
  3. ASPIRINE [Concomitant]
     Active Substance: ASPIRIN
     Indication: PRODUCT USED FOR UNKNOWN INDICATION
     Route: 065

REACTIONS (6)
  - Hypotension [Recovered/Resolved]
  - Confusional state [Recovered/Resolved]
  - Cardiac arrest [Recovered/Resolved]
  - Agitation [Recovered/Resolved]
  - Acute kidney injury [Recovered/Resolved]
  - Bradycardia [Recovered/Resolved]
